FAERS Safety Report 13697905 (Version 2)
Quarter: 2017Q4

REPORT INFORMATION
  Report Type: Report from Study
  Country: JP (occurrence: JP)
  Receive Date: 20170628
  Receipt Date: 20171031
  Transmission Date: 20180320
  Serious: Yes (Hospitalization)
  Sender: FDA-Public Use
  Company Number: JP-SA-2017SA114575

PATIENT
  Age: 62 Year
  Sex: Male

DRUGS (4)
  1. PHOSBLOCK [Suspect]
     Active Substance: FERRIC HYDROXIDE
     Route: 048
     Dates: start: 20160924
  2. ROCALTROL [Suspect]
     Active Substance: CALCITRIOL
     Route: 042
     Dates: start: 20150606
  3. PHOSBLOCK [Suspect]
     Active Substance: FERRIC HYDROXIDE
     Route: 048
     Dates: start: 20151213, end: 20160923
  4. PHOSBLOCK [Suspect]
     Active Substance: FERRIC HYDROXIDE
     Route: 048
     Dates: start: 20150606, end: 20151212

REACTIONS (3)
  - Thrombosis in device [Recovering/Resolving]
  - Pneumonia [Recovering/Resolving]
  - Thrombosis in device [Recovering/Resolving]

NARRATIVE: CASE EVENT DATE: 20161101
